FAERS Safety Report 7380615-1 (Version None)
Quarter: 2011Q1

REPORT INFORMATION
  Report Type: 
  Country: None (occurrence: None)
  Receive Date: 20110329
  Receipt Date: 20110304
  Transmission Date: 20110831
  Serious: No
  Sender: FDA-Public Use
  Company Number: US-B.I. PHARMACEUTICALS,INC./RIDGEFIELD-2010-BP-11662BP

PATIENT
  Sex: Male

DRUGS (11)
  1. CARVEDILOL [Concomitant]
     Indication: HYPERTENSION
  2. SPIRIVA [Suspect]
     Indication: DYSPNOEA
     Dosage: 18 MCG
     Route: 055
     Dates: start: 20090101
  3. METFORMIN HCL [Concomitant]
     Indication: DIABETES MELLITUS
     Route: 048
  4. SPIRIVA [Suspect]
     Indication: CHRONIC OBSTRUCTIVE PULMONARY DISEASE
  5. VENTOLIN HFA [Concomitant]
     Indication: DYSPNOEA
     Route: 048
  6. SPIRIVA [Suspect]
     Indication: EMPHYSEMA
  7. PLAVIX [Concomitant]
     Indication: CARDIAC DISORDER
     Route: 048
  8. LISINOPRIL [Concomitant]
     Indication: HYPERTENSION
  9. ALBUTEROL [Concomitant]
     Indication: EMPHYSEMA
  10. LOVASTATIN [Concomitant]
     Indication: BLOOD CHOLESTEROL INCREASED
     Route: 048
  11. METOPROLOL TARTRATE [Concomitant]
     Indication: HYPERTENSION

REACTIONS (1)
  - DYSPNOEA [None]
